FAERS Safety Report 23750299 (Version 1)
Quarter: 2024Q2

REPORT INFORMATION
  Report Type: Other
  Country: CA (occurrence: CA)
  Receive Date: 20240417
  Receipt Date: 20240417
  Transmission Date: 20240715
  Serious: Yes (Other)
  Sender: FDA-Public Use
  Company Number: CA-CELLTRION INC.-2024CA008523

PATIENT

DRUGS (27)
  1. TRASTUZUMAB [Suspect]
     Active Substance: TRASTUZUMAB
     Indication: Pancreatic carcinoma metastatic
     Dosage: THERAPY DURATION: 365.0
  2. TRASTUZUMAB [Suspect]
     Active Substance: TRASTUZUMAB
     Indication: Metastases to liver
     Dosage: THERAPY DURATION: 365.0
  3. TRASTUZUMAB [Suspect]
     Active Substance: TRASTUZUMAB
     Indication: Metastases to central nervous system
     Dosage: THERAPY DURATION: 365.0
  4. CAPECITABINE [Suspect]
     Active Substance: CAPECITABINE
     Indication: Pancreatic carcinoma metastatic
     Dosage: UNK
  5. CAPECITABINE [Suspect]
     Active Substance: CAPECITABINE
     Indication: Metastases to liver
  6. CAPECITABINE [Suspect]
     Active Substance: CAPECITABINE
     Indication: Metastases to central nervous system
  7. CAPECITABINE [Suspect]
     Active Substance: CAPECITABINE
     Indication: Pancreatic carcinoma metastatic
  8. CAPECITABINE [Suspect]
     Active Substance: CAPECITABINE
     Indication: Metastases to liver
     Dosage: UNK
  9. CAPECITABINE [Suspect]
     Active Substance: CAPECITABINE
     Indication: Metastases to central nervous system
  10. DOCETAXEL [Suspect]
     Active Substance: DOCETAXEL\DOCETAXEL ANHYDROUS
     Indication: Pancreatic carcinoma metastatic
     Dosage: UNK
  11. DOCETAXEL [Suspect]
     Active Substance: DOCETAXEL\DOCETAXEL ANHYDROUS
     Indication: Metastases to liver
  12. DOCETAXEL [Suspect]
     Active Substance: DOCETAXEL\DOCETAXEL ANHYDROUS
     Indication: Metastases to central nervous system
  13. DOCETAXEL [Suspect]
     Active Substance: DOCETAXEL\DOCETAXEL ANHYDROUS
     Indication: Pancreatic carcinoma metastatic
  14. DOCETAXEL [Suspect]
     Active Substance: DOCETAXEL\DOCETAXEL ANHYDROUS
     Indication: Metastases to liver
     Dosage: UNK
  15. DOCETAXEL [Suspect]
     Active Substance: DOCETAXEL\DOCETAXEL ANHYDROUS
     Indication: Metastases to central nervous system
  16. GEMCITABINE [Suspect]
     Active Substance: GEMCITABINE
     Indication: Pancreatic carcinoma metastatic
     Dosage: UNK
  17. GEMCITABINE [Suspect]
     Active Substance: GEMCITABINE
     Indication: Metastases to liver
  18. GEMCITABINE [Suspect]
     Active Substance: GEMCITABINE
     Indication: Metastases to central nervous system
  19. GEMCITABINE [Suspect]
     Active Substance: GEMCITABINE
     Indication: Pancreatic carcinoma metastatic
  20. GEMCITABINE [Suspect]
     Active Substance: GEMCITABINE
     Indication: Metastases to liver
  21. GEMCITABINE [Suspect]
     Active Substance: GEMCITABINE
     Indication: Metastases to central nervous system
  22. LORBRENA [Suspect]
     Active Substance: LORLATINIB
     Indication: Pancreatic carcinoma metastatic
     Dosage: THERAPY DURATION: 365.0
  23. LORBRENA [Suspect]
     Active Substance: LORLATINIB
     Indication: Metastases to liver
  24. LORBRENA [Suspect]
     Active Substance: LORLATINIB
     Indication: Metastases to central nervous system
  25. LORBRENA [Suspect]
     Active Substance: LORLATINIB
     Indication: Pancreatic carcinoma metastatic
     Dosage: THERAPY DURATION: 365.0
  26. LORBRENA [Suspect]
     Active Substance: LORLATINIB
     Indication: Metastases to liver
     Dosage: THERAPY DURATION: 365.0
  27. LORBRENA [Suspect]
     Active Substance: LORLATINIB
     Indication: Metastases to central nervous system

REACTIONS (3)
  - Pancytopenia [Unknown]
  - Off label use [Unknown]
  - Intentional product use issue [Unknown]
